FAERS Safety Report 4510698-5 (Version None)
Quarter: 2004Q4

REPORT INFORMATION
  Report Type: 
  Country: None (occurrence: None)
  Receive Date: 20041122
  Receipt Date: 20041108
  Transmission Date: 20050328
  Serious: Yes (Hospitalization)
  Sender: FDA-Public Use
  Company Number: 2004240417FR

PATIENT
  Age: 56 Year
  Sex: Male

DRUGS (10)
  1. CELEBREX [Suspect]
     Indication: ILL-DEFINED DISORDER
     Dosage: (1 IN 1 D), ORAL
     Route: 048
     Dates: start: 20030919, end: 20031002
  2. NAPROXEN [Suspect]
     Indication: ILL-DEFINED DISORDER
     Dosage: 550 MG (D), ORAL
     Route: 048
     Dates: start: 20030922, end: 20031004
  3. DELTASONE (DELTASONE) [Concomitant]
     Indication: ILL-DEFINED DISORDER
     Dosage: 20 MG (D), ORAL
     Route: 048
     Dates: start: 20030922, end: 20031004
  4. BREXICAM (PIROXICAM BETADEX) [Suspect]
     Indication: ILL-DEFINED DISORDER
     Dosage: 20 MG (D), ORAL
     Route: 048
     Dates: start: 20030929, end: 20031002
  5. TETRAZEPAM (TETRAZEPAM) [Concomitant]
     Indication: ILL-DEFINED DISORDER
     Dosage: (0.5 DF DAILY), ORAL
     Route: 048
     Dates: start: 20030929, end: 20031004
  6. LOSARTAN (LOSARTAN) [Suspect]
     Indication: ILL-DEFINED DISORDER
     Dosage: (1 DF DAILY), ORAL
     Route: 048
     Dates: start: 20030101, end: 20031004
  7. KETOPROFEN [Concomitant]
  8. DICLOFENAC (DICLOFENAC) [Concomitant]
  9. CODEINE PHOSPHATE AND ACETAMINOPHEN [Concomitant]
  10. OMEPRAZOLE [Concomitant]

REACTIONS (12)
  - BLOOD UREA INCREASED [None]
  - COMPLEMENT FACTOR C3 INCREASED [None]
  - COMPLEMENT FACTOR C4 INCREASED [None]
  - DRUG INEFFECTIVE [None]
  - EOSINOPHIL COUNT INCREASED [None]
  - LIP EROSION [None]
  - PRURITUS [None]
  - RASH PAPULAR [None]
  - RASH PRURITIC [None]
  - RASH PUSTULAR [None]
  - RED BLOOD CELL SEDIMENTATION RATE INCREASED [None]
  - TOXIC SKIN ERUPTION [None]
